FAERS Safety Report 5132676-8 (Version None)
Quarter: 2006Q4

REPORT INFORMATION
  Report Type: 
  Country: None (occurrence: None)
  Receive Date: 20061019
  Receipt Date: 20061019
  Transmission Date: 20070319
  Serious: Yes (Hospitalization)
  Sender: FDA-Public Use
  Company Number: None

PATIENT
  Sex: Male
  Weight: 23.6 kg

DRUGS (1)
  1. RITUXIMAB (MOAB C2B8 ANTI CD20, CHIMERIC) [Suspect]
     Dosage: 700 MG
     Dates: end: 20060930

REACTIONS (15)
  - ACIDOSIS [None]
  - BLOOD CULTURE POSITIVE [None]
  - CARDIO-RESPIRATORY ARREST [None]
  - COAGULATION TEST ABNORMAL [None]
  - COLITIS [None]
  - COLON GANGRENE [None]
  - FATIGUE [None]
  - HAEMOGLOBIN ABNORMAL [None]
  - HYPOTENSION [None]
  - LABILE BLOOD PRESSURE [None]
  - MUCOSAL INFLAMMATION [None]
  - NEUTROPENIA [None]
  - PLATELET DISORDER [None]
  - PULMONARY OEDEMA [None]
  - STAPHYLOCOCCAL INFECTION [None]
